FAERS Safety Report 7546579-2 (Version None)
Quarter: 2011Q2

REPORT INFORMATION
  Report Type: 
  Country: None (occurrence: None)
  Receive Date: 20110614
  Receipt Date: 20110530
  Transmission Date: 20111010
  Serious: Yes (Death)
  Sender: FDA-Public Use
  Company Number: ES-CELGENEUS-144-50794-11053816

PATIENT
  Age: 70 Year
  Sex: Female

DRUGS (2)
  1. TRANSFUSIONS [Concomitant]
     Route: 051
     Dates: start: 20101001
  2. VIDAZA [Suspect]
     Route: 050
     Dates: start: 20101101, end: 20110201

REACTIONS (2)
  - NO THERAPEUTIC RESPONSE [None]
  - NEUTROPENIA [None]
